FAERS Safety Report 18864774 (Version 1)
Quarter: 2021Q1

REPORT INFORMATION
  Report Type: Spontaneous
  Country: JP (occurrence: JP)
  Receive Date: 20210209
  Receipt Date: 20210209
  Transmission Date: 20210420
  Serious: Yes (Other)
  Sender: FDA-Public Use
  Company Number: JP-ADVANZ PHARMA-202101000858

PATIENT

DRUGS (1)
  1. ZONISAMIDE. [Suspect]
     Active Substance: ZONISAMIDE
     Indication: PRODUCT USED FOR UNKNOWN INDICATION
     Dosage: CAPSULES, TRERIEF
     Route: 048

REACTIONS (4)
  - Sepsis [Unknown]
  - Renal failure [Unknown]
  - Nephrolithiasis [Unknown]
  - Acute hepatic failure [Unknown]
